FAERS Safety Report 8491460-8 (Version None)
Quarter: 2012Q3

REPORT INFORMATION
  Report Type: 
  Country: None (occurrence: None)
  Receive Date: 20120706
  Receipt Date: 20120701
  Transmission Date: 20120928
  Serious: Yes (Life-Threatening, Hospitalization, Disabling, Other)
  Sender: FDA-Public Use
  Company Number: CZ-PFIZER INC-2012152129

PATIENT
  Age: 30 Year
  Sex: Male

DRUGS (1)
  1. CISPLATIN [Suspect]
     Indication: LIP AND/OR ORAL CAVITY CANCER
     Dosage: 70 MG, WEEKLY (10MG DAILY DOSE)
     Route: 041
     Dates: start: 20111107

REACTIONS (3)
  - PANCYTOPENIA [None]
  - COLITIS [None]
  - SEPSIS [None]
